FAERS Safety Report 9839477 (Version 2)
Quarter: 2014Q1

REPORT INFORMATION
  Report Type: Report from Study
  Country: AR (occurrence: AR)
  Receive Date: 20140124
  Receipt Date: 20140125
  Transmission Date: 20141002
  Serious: Yes (Other)
  Sender: FDA-Public Use
  Company Number: AR-ROCHE-1336481

PATIENT
  Sex: Female

DRUGS (1)
  1. RANIBIZUMAB [Suspect]
     Indication: MACULOPATHY
     Route: 050

REACTIONS (3)
  - Deafness [Recovered/Resolved]
  - Pharyngitis [Recovered/Resolved]
  - Conjunctivitis [Recovered/Resolved]
